FAERS Safety Report 7610244-3 (Version None)
Quarter: 2011Q3

REPORT INFORMATION
  Report Type: 
  Country: None (occurrence: None)
  Receive Date: 20110713
  Receipt Date: 20110713
  Transmission Date: 20111222
  Serious: Yes (Death)
  Sender: FDA-Public Use
  Company Number: None

PATIENT
  Sex: Male
  Weight: 75.2971 kg

DRUGS (2)
  1. LAMOTRIGINE [Suspect]
     Indication: CONVULSION
     Dosage: 200MG AM
     Dates: start: 20090910, end: 20090918
  2. LAMOTRIGINE [Suspect]
     Indication: CONVULSION
     Dosage: 200MG AM 3X
     Dates: start: 20090812, end: 20090910

REACTIONS (2)
  - UNRESPONSIVE TO STIMULI [None]
  - PRODUCT SUBSTITUTION ISSUE [None]
